FAERS Safety Report 5303252-9 (Version None)
Quarter: 2007Q2

REPORT INFORMATION
  Report Type: 
  Country: None (occurrence: None)
  Receive Date: 20070420
  Receipt Date: 20070410
  Transmission Date: 20071010
  Serious: Yes (Other)
  Sender: FDA-Public Use
  Company Number: US-ROCHE-481303

PATIENT
  Age: 45 Year
  Sex: Female

DRUGS (2)
  1. PEGASYS [Suspect]
     Dosage: CURRENTLY ON 13TH WEEK OF THERAPY.
     Route: 065
     Dates: start: 20070115
  2. COPEGUS [Suspect]
     Dosage: 400 MG IN THE MORNING AND 600 MG IN THE EVENING. CURRENTLY ON 13TH WEEK OF THERAPY.
     Route: 065
     Dates: start: 20070115

REACTIONS (8)
  - ABDOMINAL MASS [None]
  - ANAEMIA [None]
  - ANOREXIA [None]
  - BREAST MASS [None]
  - CARDIOMEGALY [None]
  - DISCOMFORT [None]
  - FATIGUE [None]
  - HEPATIC STEATOSIS [None]
